FAERS Safety Report 20310868 (Version 2)
Quarter: 2022Q1

REPORT INFORMATION
  Report Type: Report from Study
  Country: BR (occurrence: BR)
  Receive Date: 20220107
  Receipt Date: 20220122
  Transmission Date: 20220424
  Serious: Yes (Other)
  Sender: FDA-Public Use
  Company Number: BR-NOVARTISPH-NVSC2021BR300522

PATIENT
  Age: 77 Year
  Sex: Male

DRUGS (2)
  1. DIOVAN [Suspect]
     Active Substance: VALSARTAN
     Indication: Blood pressure abnormal
     Dosage: 80 MG (START DATE- MORE THAN 2 OR 3 YEARS AGO)
     Route: 065
  2. METFORMIN HYDROCHLORIDE\VILDAGLIPTIN [Suspect]
     Active Substance: METFORMIN HYDROCHLORIDE\VILDAGLIPTIN
     Indication: Diabetes mellitus
     Dosage: 1 DOSAGE FORM, Q12H (STARTED APPROX 3 YEARS OR MORE)
     Route: 065

REACTIONS (13)
  - Cataract [Unknown]
  - Diabetes mellitus inadequate control [Recovering/Resolving]
  - Fall [Unknown]
  - Pain [Unknown]
  - Dysgeusia [Unknown]
  - Oral discomfort [Unknown]
  - Back disorder [Unknown]
  - Visual impairment [Unknown]
  - Intraocular pressure increased [Unknown]
  - Eyelid ptosis [Unknown]
  - Eyelid irritation [Unknown]
  - Malaise [Unknown]
  - Sitting disability [Unknown]

NARRATIVE: CASE EVENT DATE: 20170901
